FAERS Safety Report 6883830-6 (Version None)
Quarter: 2010Q3

REPORT INFORMATION
  Report Type: 
  Country: None (occurrence: None)
  Receive Date: 20100729
  Receipt Date: 20100721
  Transmission Date: 20110219
  Serious: Yes (Death, Hospitalization)
  Sender: FDA-Public Use
  Company Number: US-CELGENEUS-163-21880-10070921

PATIENT
  Age: 58 Year
  Sex: Male

DRUGS (2)
  1. REVLIMID [Suspect]
     Indication: ACUTE MYELOID LEUKAEMIA
     Route: 048
     Dates: end: 20100706
  2. REVLIMID [Suspect]

REACTIONS (6)
  - ARTHRALGIA [None]
  - DEATH [None]
  - DEHYDRATION [None]
  - JOINT SWELLING [None]
  - PYREXIA [None]
  - RENAL FAILURE [None]
